FAERS Safety Report 8440526-7 (Version None)
Quarter: 2012Q2

REPORT INFORMATION
  Report Type: 
  Country: None (occurrence: None)
  Receive Date: 20120615
  Receipt Date: 20120605
  Transmission Date: 20120825
  Serious: Yes (Hospitalization)
  Sender: FDA-Public Use
  Company Number: FR-BRISTOL-MYERS SQUIBB COMPANY-16670721

PATIENT
  Age: 56 Year
  Sex: Female

DRUGS (6)
  1. CALCIUM CARBONATE [Suspect]
     Route: 048
     Dates: end: 20120327
  2. JANUVIA [Concomitant]
  3. DIAMICRON [Concomitant]
  4. UN-ALFA [Suspect]
     Dosage: CAPSULE. INTERRUPTED ON 27MAR12, RESUMED WITH HALF DOSE
     Route: 048
  5. IRBESARTAN AND HYDROCHLOROTHIAZIDE [Suspect]
     Indication: HYPERTENSION
     Dosage: 1DF= 300 MG/25MG
     Route: 048
     Dates: end: 20120327
  6. LEVOTHYROXINE SODIUM [Concomitant]
     Route: 048

REACTIONS (2)
  - RENAL FAILURE [None]
  - HYPERCALCAEMIA [None]
